FAERS Safety Report 9916827 (Version 2)
Quarter: 2014Q1

REPORT INFORMATION
  Report Type: Spontaneous
  Country: DE (occurrence: DE)
  Receive Date: 20140221
  Receipt Date: 20140324
  Transmission Date: 20141002
  Serious: Yes (Hospitalization, Other)
  Sender: FDA-Public Use
  Company Number: DE-AMGEN-DEUSP2014012091

PATIENT
  Age: 49 Year
  Sex: Female

DRUGS (9)
  1. NEULASTA [Suspect]
     Indication: PROPHYLAXIS
     Dosage: 6 MG, EVERY 2 WEEKS
     Route: 058
     Dates: start: 20130719, end: 20130925
  2. DOCETAXEL [Concomitant]
     Indication: BREAST CANCER
     Dosage: 128 MG, QD
     Route: 042
     Dates: start: 20130924, end: 20130924
  3. EPIRUBICIN [Concomitant]
     Indication: BREAST CANCER
     Dosage: 206 MG, QD
     Route: 042
     Dates: start: 20130718, end: 20130903
  4. CYCLOPHOSPHAMIDE [Concomitant]
     Indication: BREAST CANCER
     Dosage: 2064 MG, QD
     Route: 042
     Dates: start: 20130718, end: 20130903
  5. CLEXANE [Concomitant]
     Dosage: 60 UNK, UNK
     Dates: start: 20130910
  6. TAVOR                              /00273201/ [Concomitant]
     Dosage: 1 MG, UNK
     Dates: start: 20130725
  7. PANTOPRAZOL [Concomitant]
     Dosage: 40 MG, UNK
     Dates: start: 20130910
  8. VERGENTAN [Concomitant]
     Dosage: UNK
     Dates: start: 20131001
  9. NEORECORMON [Concomitant]
     Dosage: 30.000 UNK, UNK
     Route: 058
     Dates: start: 20140317

REACTIONS (2)
  - Back pain [Recovered/Resolved]
  - Pulmonary embolism [Unknown]
